FAERS Safety Report 5669616-9 (Version None)
Quarter: 2008Q1

REPORT INFORMATION
  Report Type: 
  Country: None (occurrence: None)
  Receive Date: 20080317
  Receipt Date: 20080311
  Transmission Date: 20080703
  Serious: Yes (Other)
  Sender: FDA-Public Use
  Company Number: PHEH2008US00984

PATIENT
  Age: 40 Year
  Sex: Male

DRUGS (1)
  1. DIOVAN HCT [Suspect]
     Indication: HYPERTENSION
     Dosage: 160 MG VAL/12.5 MG HCT, QD
     Route: 048
     Dates: end: 20080114

REACTIONS (11)
  - ARTHRALGIA [None]
  - BODY MASS INDEX INCREASED [None]
  - EJECTION FRACTION DECREASED [None]
  - GALLBLADDER DISORDER [None]
  - HYPERCHOLESTEROLAEMIA [None]
  - HYPERTRIGLYCERIDAEMIA [None]
  - PLATELET COUNT DECREASED [None]
  - RHINITIS SEASONAL [None]
  - STRESS AT WORK [None]
  - TENDON OPERATION [None]
  - THROMBOCYTOPENIA [None]
